FAERS Safety Report 16244017 (Version 1)
Quarter: 2019Q2

REPORT INFORMATION
  Report Type: Spontaneous
  Country: GB (occurrence: GB)
  Receive Date: 20190426
  Receipt Date: 20190426
  Transmission Date: 20190711
  Serious: Yes (Other)
  Sender: FDA-Public Use
  Company Number: GB-ENDO PHARMACEUTICALS INC-2019-104256

PATIENT
  Sex: Female

DRUGS (1)
  1. TESTIM [Suspect]
     Active Substance: TESTOSTERONE
     Indication: LIBIDO DISORDER
     Dosage: UNK UNKNOWN, UNKNOWN
     Route: 061
     Dates: start: 2012

REACTIONS (6)
  - Osteoporosis [Unknown]
  - Off label use [Unknown]
  - Dental implantation [Unknown]
  - Hypersexuality [Unknown]
  - Libido increased [Unknown]
  - Hypertrichosis [Unknown]

NARRATIVE: CASE EVENT DATE: 2012
